FAERS Safety Report 15284389 (Version 1)
Quarter: 2018Q3

REPORT INFORMATION
  Report Type: Spontaneous
  Country: US (occurrence: US)
  Receive Date: 20180801
  Receipt Date: 20180801
  Transmission Date: 20181010
  Serious: Yes (Hospitalization)
  Sender: FDA-Public Use
  Company Number: None

PATIENT
  Age: 73 Year
  Sex: Male
  Weight: 98 kg

DRUGS (2)
  1. AZA (AZACITIDINE) [Suspect]
     Active Substance: AZACITIDINE
     Indication: ACUTE MYELOID LEUKAEMIA
     Dosage: 18 DAILU X 7 DAYS 228D
     Route: 042
     Dates: start: 20180702, end: 20180709
  2. PEMBROLIZUMAB. [Suspect]
     Active Substance: PEMBROLIZUMAB
     Dosage: 1X EVERY 3 WEEKS
     Route: 042
     Dates: start: 20180716

REACTIONS (3)
  - Diverticulitis [None]
  - Febrile neutropenia [None]
  - Abdominal pain [None]

NARRATIVE: CASE EVENT DATE: 20180721
